FAERS Safety Report 22595008 (Version 2)
Quarter: 2023Q2

REPORT INFORMATION
  Report Type: Spontaneous
  Country: PT (occurrence: PT)
  Receive Date: 20230613
  Receipt Date: 20230626
  Transmission Date: 20230722
  Serious: Yes (Hospitalization, Other)
  Sender: FDA-Public Use
  Company Number: PT-MYLANLABS-2023M1058018

PATIENT
  Age: 47 Year
  Sex: Female

DRUGS (2)
  1. METFORMIN [Suspect]
     Active Substance: METFORMIN HYDROCHLORIDE
     Indication: Diabetes mellitus
     Dosage: 2 G, QD
     Route: 065
  2. INSULIN GLARGINE [Suspect]
     Active Substance: INSULIN GLARGINE
     Indication: Diabetes mellitus
     Dosage: UNK
     Route: 065

REACTIONS (10)
  - Lactic acidosis [Unknown]
  - Asthenia [Unknown]
  - Blood creatinine increased [Recovering/Resolving]
  - Dehydration [Unknown]
  - Blood urea increased [Recovering/Resolving]
  - Hyperlactacidaemia [Recovered/Resolved]
  - Hypotension [Unknown]
  - Vomiting [Unknown]
  - Nausea [Unknown]
  - Metabolic acidosis [Unknown]
